FAERS Safety Report 8062635-7 (Version None)
Quarter: 2012Q1

REPORT INFORMATION
  Report Type: 
  Country: None (occurrence: None)
  Receive Date: 20120118
  Receipt Date: 20120109
  Transmission Date: 20120608
  Serious: Yes (Other)
  Sender: FDA-Public Use
  Company Number: KAD201201-000008

PATIENT
  Age: 45 Year
  Sex: Male

DRUGS (3)
  1. TELAPREVIR (TELAPREVIR) [Suspect]
     Indication: HEPATITIS C
     Dosage: THREE TIMES A DAY
     Dates: start: 20111203
  2. RIBAVIRIN [Suspect]
     Indication: HEPATITIS C
     Dosage: 1200 MG/DAY
     Dates: start: 20111203
  3. PEGASYS [Suspect]
     Indication: HEPATITIS C
     Dosage: 180 MCG/WEEK
     Dates: start: 20111203

REACTIONS (4)
  - WHITE BLOOD CELL COUNT DECREASED [None]
  - ANXIETY [None]
  - BURNING SENSATION [None]
  - HAEMORRHAGE [None]
